FAERS Safety Report 9749240 (Version 2)
Quarter: 2014Q1

REPORT INFORMATION
  Report Type: Spontaneous
  Country: US (occurrence: US)
  Receive Date: 20131212
  Receipt Date: 20140312
  Transmission Date: 20141002
  Serious: No
  Sender: FDA-Public Use
  Company Number: US-INCYTE CORPORATION-2013IN002700

PATIENT
  Sex: Male
  Weight: 119.27 kg

DRUGS (6)
  1. JAKAFI [Suspect]
     Indication: MYELOFIBROSIS
     Dosage: 25 MG, BID
     Route: 048
     Dates: start: 20130816, end: 20131125
  2. ASPIRIN (E.C.) [Concomitant]
  3. HYDROCHLOROTHIAZIDE [Concomitant]
  4. NORCO [Concomitant]
  5. TOPROL [Concomitant]
  6. ULTRAM                             /00599202/ [Concomitant]

REACTIONS (3)
  - Night sweats [Recovered/Resolved]
  - Pruritus [Recovered/Resolved]
  - Abdominal pain upper [Recovered/Resolved]
